FAERS Safety Report 7008736-3 (Version None)
Quarter: 2010Q3

REPORT INFORMATION
  Report Type: 
  Country: None (occurrence: None)
  Receive Date: 20100921
  Receipt Date: 20100914
  Transmission Date: 20110219
  Serious: Yes (Other)
  Sender: FDA-Public Use
  Company Number: 2010SP044289

PATIENT
  Sex: Female
  Weight: 150 kg

DRUGS (1)
  1. IMPLANON [Suspect]
     Indication: HAEMORRHAGE
     Dosage: 1 DF
     Dates: start: 20040101

REACTIONS (2)
  - INCORRECT DRUG ADMINISTRATION DURATION [None]
  - MEDICAL DEVICE COMPLICATION [None]
